FAERS Safety Report 23632317 (Version 1)
Quarter: 2024Q1

REPORT INFORMATION
  Report Type: Spontaneous
  Country: US (occurrence: US)
  Receive Date: 20240314
  Receipt Date: 20240314
  Transmission Date: 20240410
  Serious: No
  Sender: FDA-Public Use
  Company Number: ENDB23-03543

PATIENT
  Age: 80 Year
  Sex: Female
  Weight: 80.726 kg

DRUGS (2)
  1. XIAFLEX [Suspect]
     Active Substance: COLLAGENASE CLOSTRIDIUM HISTOLYTICUM
     Indication: Dupuytren^s contracture
     Dosage: UNK UNKNOWN, UNKNOWN (INJECTION TWO ON RIGHT LITTLE FINGER)
     Route: 051
     Dates: start: 20221214
  2. XIAFLEX [Suspect]
     Active Substance: COLLAGENASE CLOSTRIDIUM HISTOLYTICUM
     Dosage: UNK UNKNOWN, UNKNOWN (INJECTION ONE ON HAND)
     Route: 051
     Dates: start: 2013

REACTIONS (4)
  - Procedural pain [Unknown]
  - Injection site pain [Unknown]
  - Contusion [Unknown]
  - Drug effect less than expected [Unknown]

NARRATIVE: CASE EVENT DATE: 20221201
